FAERS Safety Report 19295008 (Version 1)
Quarter: 2021Q2

REPORT INFORMATION
  Report Type: Other
  Country: NL (occurrence: GB)
  Receive Date: 20210524
  Receipt Date: 20210524
  Transmission Date: 20210717
  Serious: No
  Sender: FDA-Public Use
  Company Number: NL-SIEMENS HEALTHCARE LIMITED-PET-000136-2020

PATIENT
  Age: 81 Year
  Sex: Female
  Weight: 53.6 kg

DRUGS (1)
  1. FLUORODEOXYGLUCOSE 18F [Suspect]
     Active Substance: FLUDEOXYGLUCOSE F-18
     Indication: PRODUCT USED FOR UNKNOWN INDICATION
     Dosage: 180 MEGABECQUEREL
     Route: 042
     Dates: start: 20201123, end: 20201123

REACTIONS (2)
  - Rash erythematous [Unknown]
  - Pruritus [Unknown]

NARRATIVE: CASE EVENT DATE: 20201123
